FAERS Safety Report 17941847 (Version 1)
Quarter: 2020Q2

REPORT INFORMATION
  Report Type: Spontaneous
  Country: US (occurrence: US)
  Receive Date: 20200624
  Receipt Date: 20200624
  Transmission Date: 20200714
  Serious: Yes (Hospitalization)
  Sender: FDA-Public Use
  Company Number: None

PATIENT
  Age: 61 Year
  Sex: Female

DRUGS (1)
  1. ORENCIA [Suspect]
     Active Substance: ABATACEPT
     Indication: RHEUMATOID ARTHRITIS
     Dosage: 125MG OTHER
     Route: 058
     Dates: start: 201006, end: 202002

REACTIONS (2)
  - Condition aggravated [None]
  - Diverticulitis [None]

NARRATIVE: CASE EVENT DATE: 20200624
